FAERS Safety Report 25061623 (Version 1)
Quarter: 2025Q1

REPORT INFORMATION
  Report Type: Spontaneous
  Country: US (occurrence: US)
  Receive Date: 20250311
  Receipt Date: 20250311
  Transmission Date: 20250409
  Serious: Yes (Life-Threatening, Other)
  Sender: BAXTER
  Company Number: US-BAXTER-2025BAX012199

PATIENT

DRUGS (2)
  1. NOREPINEPHRINE BITARTRATE [Suspect]
     Active Substance: NOREPINEPHRINE BITARTRATE
     Indication: Blood pressure management
     Route: 065
     Dates: start: 20250219
  2. SODIUM BICARBONATE [Suspect]
     Active Substance: SODIUM BICARBONATE
     Indication: Blood pressure management
     Route: 065
     Dates: start: 20250219

REACTIONS (4)
  - Hypotension [Unknown]
  - Drug ineffective [Unknown]
  - Incorrect drug administration rate [Unknown]
  - Device infusion issue [Unknown]

NARRATIVE: CASE EVENT DATE: 20250219
